FAERS Safety Report 5511049-X (Version None)
Quarter: 2007Q4

REPORT INFORMATION
  Report Type: 
  Country: None (occurrence: None)
  Receive Date: 20071107
  Receipt Date: 20071024
  Transmission Date: 20080405
  Serious: Yes (Hospitalization)
  Sender: FDA-Public Use
  Company Number: 02100-JPN-07-0680

PATIENT
  Age: 65 Year
  Sex: Male

DRUGS (6)
  1. CILOSTAZOL [Suspect]
     Indication: ANGINA PECTORIS
     Dosage: 200 MG
     Route: 048
     Dates: start: 20070905, end: 20070918
  2. IOPAMIDOL-300 [Suspect]
     Indication: ARTERIOGRAM
     Dosage: IV NOTSPEC
     Route: 042
     Dates: start: 20070905, end: 20070905
  3. TICLOPIDINE HYDROCHLORIDE [Suspect]
     Indication: ANGINA PECTORIS
     Dosage: 200 MG
     Route: 048
     Dates: start: 20070905, end: 20070918
  4. LOXOPROFEN SODIUM [Suspect]
     Indication: GINGIVITIS
     Dosage: 180 MG
     Route: 048
     Dates: start: 20070905, end: 20070918
  5. SULBACTAM SODIUM-AMPICILLIN SODIUM [Concomitant]
  6. CEFAMEZIN SODIUM [Concomitant]

REACTIONS (2)
  - ERYTHEMA MULTIFORME [None]
  - PRURITUS [None]
